FAERS Safety Report 24756024 (Version 7)
Quarter: 2025Q2

REPORT INFORMATION
  Report Type: Spontaneous
  Country: US (occurrence: US)
  Receive Date: 20241219
  Receipt Date: 20250513
  Transmission Date: 20250717
  Serious: Yes (Other)
  Sender: BAUSCH AND LOMB
  Company Number: US-BAUSCH-BL-2024-018262

PATIENT
  Age: 76 Year
  Sex: Female

DRUGS (2)
  1. MYSOLINE [Suspect]
     Active Substance: PRIMIDONE
     Indication: Seizure
     Route: 048
     Dates: start: 1974
  2. MYSOLINE [Suspect]
     Active Substance: PRIMIDONE
     Indication: Epilepsy
     Dosage: SHE TAKE ONCE A DAY (250 MG)
     Route: 048

REACTIONS (5)
  - Cataract [Not Recovered/Not Resolved]
  - Seizure [Recovered/Resolved]
  - Disease recurrence [Recovered/Resolved]
  - Headache [Not Recovered/Not Resolved]
  - Adverse event following immunisation [Unknown]
